FAERS Safety Report 10221272 (Version 2)
Quarter: 2014Q2

REPORT INFORMATION
  Report Type: Spontaneous
  Country: US (occurrence: US)
  Receive Date: 20140606
  Receipt Date: 20140626
  Transmission Date: 20141212
  Serious: Yes (Other)
  Sender: FDA-Public Use
  Company Number: US-PFIZER INC-2014155700

PATIENT
  Age: 68 Year
  Sex: Female
  Weight: 58.96 kg

DRUGS (5)
  1. ADVIL [Suspect]
     Indication: PAIN
     Dosage: 200 MG, 2X/DAY
     Route: 048
     Dates: start: 201205
  2. ADVIL [Suspect]
     Indication: JOINT SWELLING
     Dosage: 200 MG, 2X/DAY
     Route: 048
     Dates: end: 2012
  3. ATENOLOL [Concomitant]
     Indication: HYPERTENSION
     Dosage: 25 MG, DAILY
  4. AMLODIPINE [Concomitant]
     Indication: HYPERTENSION
     Dosage: 10 MG, DAILY
  5. LISINOPRIL [Concomitant]
     Indication: HYPERTENSION
     Dosage: 10 MG, DAILY

REACTIONS (5)
  - Renal impairment [Not Recovered/Not Resolved]
  - Dyspepsia [Recovered/Resolved]
  - Nausea [Recovered/Resolved]
  - Blood calcium increased [Unknown]
  - Drug ineffective for unapproved indication [Unknown]
